FAERS Safety Report 18975750 (Version 1)
Quarter: 2021Q1

REPORT INFORMATION
  Report Type: Spontaneous
  Country: US (occurrence: US)
  Receive Date: 20210305
  Receipt Date: 20210305
  Transmission Date: 20210420
  Serious: No
  Sender: FDA-Public Use
  Company Number: US-BAUSCH-BL-2021-005406

PATIENT
  Sex: Male

DRUGS (1)
  1. JUBLIA [Suspect]
     Active Substance: EFINACONAZOLE
     Indication: PRODUCT USED FOR UNKNOWN INDICATION
     Dosage: STARTED YEAR AND A HALF NOW FROM THE DATE OF REPORT ON 09/FEB/2021
     Route: 065
     Dates: start: 2019

REACTIONS (2)
  - Onychomycosis [Not Recovered/Not Resolved]
  - Product use issue [Unknown]
